FAERS Safety Report 19844377 (Version 1)
Quarter: 2021Q3

REPORT INFORMATION
  Report Type: Other
  Country: US (occurrence: US)
  Receive Date: 20210917
  Receipt Date: 20210917
  Transmission Date: 20211014
  Serious: No
  Sender: FDA-Public Use
  Company Number: US-ROCHE-2559124

PATIENT
  Age: 49 Year
  Sex: Female
  Weight: 62.65 kg

DRUGS (2)
  1. OCREVUS [Suspect]
     Active Substance: OCRELIZUMAB
     Indication: RELAPSING MULTIPLE SCLEROSIS
     Dosage: DATE OF TREATMENT? 19/AUG/2019, 06/MAR/2020, 04/SEP/2020, 19/MAR/2021?ANTICIPATED DATE OF TREATMENT?
     Route: 042
     Dates: start: 20190819
  2. OCREVUS [Suspect]
     Active Substance: OCRELIZUMAB
     Indication: SECONDARY PROGRESSIVE MULTIPLE SCLEROSIS
     Route: 042
     Dates: start: 20190819

REACTIONS (6)
  - Asthenia [Not Recovered/Not Resolved]
  - Fungal infection [Not Recovered/Not Resolved]
  - Immunosuppression [Unknown]
  - Rash [Recovered/Resolved]
  - Influenza [Recovered/Resolved]
  - Cystitis [Not Recovered/Not Resolved]

NARRATIVE: CASE EVENT DATE: 201910
